FAERS Safety Report 6357315-X (Version None)
Quarter: 2009Q3

REPORT INFORMATION
  Report Type: 
  Country: None (occurrence: None)
  Receive Date: 20090916
  Receipt Date: 20090912
  Transmission Date: 20100115
  Serious: Yes (Death)
  Sender: FDA-Public Use
  Company Number: PHEH2009US10258

PATIENT
  Sex: Female
  Weight: 53.968 kg

DRUGS (1)
  1. EXJADE [Suspect]
     Indication: MYELODYSPLASTIC SYNDROME
     Dosage: 500 MG DAILY
     Route: 048
     Dates: start: 20090821

REACTIONS (1)
  - DEATH [None]
